FAERS Safety Report 8596765-8 (Version None)
Quarter: 2012Q3

REPORT INFORMATION
  Report Type: 
  Country: None (occurrence: None)
  Receive Date: 20120815
  Receipt Date: 20120629
  Transmission Date: 20120928
  Serious: No
  Sender: FDA-Public Use
  Company Number: US-ASTRAZENECA-2012SE44690

PATIENT
  Age: 51 Year
  Sex: Male

DRUGS (5)
  1. SEROQUEL XR [Suspect]
     Indication: AGITATION
     Route: 048
     Dates: start: 20090101
  2. SEROQUEL XR [Suspect]
     Indication: ANXIETY DISORDER
     Route: 048
     Dates: start: 20090101
  3. SEROQUEL XR [Suspect]
     Indication: BIPOLAR I DISORDER
     Route: 048
     Dates: start: 20090101
  4. SEROQUEL XR [Suspect]
     Indication: PANIC DISORDER
     Route: 048
     Dates: start: 20090101
  5. SEROQUEL XR [Suspect]
     Indication: ANGER
     Route: 048
     Dates: start: 20090101

REACTIONS (11)
  - HUNGER [None]
  - ANGER [None]
  - FATIGUE [None]
  - FEELING HOT [None]
  - INSOMNIA [None]
  - IRRITABILITY [None]
  - MALAISE [None]
  - DRUG DOSE OMISSION [None]
  - HEADACHE [None]
  - AGGRESSION [None]
  - TEMPERATURE INTOLERANCE [None]
